FAERS Safety Report 20082378 (Version 1)
Quarter: 2021Q4

REPORT INFORMATION
  Report Type: Spontaneous
  Country: EG (occurrence: None)
  Receive Date: 20211117
  Receipt Date: 20211117
  Transmission Date: 20220303
  Serious: Yes (Other)
  Sender: FDA-Public Use
  Company Number: 2021A807366

PATIENT
  Age: 57 Year
  Sex: Female

DRUGS (5)
  1. TICAGRELOR [Suspect]
     Active Substance: TICAGRELOR
     Indication: Acute coronary syndrome
     Route: 048
     Dates: start: 2016
  2. TICAGRELOR [Suspect]
     Active Substance: TICAGRELOR
     Indication: Stent placement
     Route: 048
     Dates: start: 2016
  3. ZYROFAST [Concomitant]
     Route: 065
  4. CANDALKAN [Concomitant]
     Route: 065
  5. BRADIPECT [Concomitant]
     Route: 065

REACTIONS (3)
  - Vascular stent thrombosis [Recovered/Resolved]
  - Renal function test abnormal [Recovered/Resolved]
  - Haemorrhage [Recovered/Resolved]
